FAERS Safety Report 6893429-3 (Version None)
Quarter: 2010Q3

REPORT INFORMATION
  Report Type: 
  Country: None (occurrence: None)
  Receive Date: 20100731
  Receipt Date: 20090915
  Transmission Date: 20110219
  Serious: No
  Sender: FDA-Public Use
  Company Number: US-PFIZER INC-2009220763

PATIENT
  Sex: Female
  Weight: 65.77 kg

DRUGS (7)
  1. NEURONTIN [Suspect]
     Indication: NECK PAIN
     Dosage: 300 MG, 3X/DAY
     Route: 048
     Dates: start: 20090513
  2. NEURONTIN [Suspect]
     Indication: PAIN IN EXTREMITY
  3. NEURONTIN [Suspect]
     Indication: LUMBAR RADICULOPATHY
  4. LIPITOR [Concomitant]
     Dosage: 60 MG, 1X/DAY
     Dates: start: 20000101
  5. VALIUM [Concomitant]
     Dosage: UNK
  6. VICODIN [Concomitant]
     Dosage: UNK
  7. PAXIL [Concomitant]
     Dosage: UNK
     Dates: start: 20090101

REACTIONS (6)
  - DIZZINESS [None]
  - HYPERHIDROSIS [None]
  - JOINT SPRAIN [None]
  - NAUSEA [None]
  - REGURGITATION [None]
  - VOMITING [None]
